FAERS Safety Report 6761405-7 (Version None)
Quarter: 2010Q2

REPORT INFORMATION
  Report Type: 
  Country: None (occurrence: None)
  Receive Date: 20100607
  Receipt Date: 20100525
  Transmission Date: 20101027
  Serious: Yes (Other)
  Sender: FDA-Public Use
  Company Number: 2010AP001101

PATIENT
  Age: 24 Year
  Sex: Male

DRUGS (3)
  1. CITALOPRAM HYDROBROMIDE [Suspect]
     Indication: DEPRESSION
     Dosage: 20 MG; PO
     Route: 048
     Dates: start: 20100424, end: 20100502
  2. IBUPROFEN [Concomitant]
  3. PARACETAMOL (PARACETAMOL) [Concomitant]

REACTIONS (1)
  - RASH MACULO-PAPULAR [None]
